FAERS Safety Report 6315891-7 (Version None)
Quarter: 2009Q3

REPORT INFORMATION
  Report Type: 
  Country: None (occurrence: None)
  Receive Date: 20090820
  Receipt Date: 20090814
  Transmission Date: 20100115
  Serious: Yes (Hospitalization)
  Sender: FDA-Public Use
  Company Number: US-ELI_LILLY_AND_COMPANY-US200906004328

PATIENT
  Sex: Male
  Weight: 158.73 kg

DRUGS (5)
  1. BYETTA [Suspect]
     Indication: TYPE 2 DIABETES MELLITUS
     Dosage: 5 UG, UNK
     Route: 058
     Dates: start: 20070507, end: 20090616
  2. METFORMIN [Concomitant]
  3. LASIX [Concomitant]
     Indication: OEDEMA
     Dosage: 40 MG, DAILY (1/D)
  4. ALDACTONE [Concomitant]
     Indication: OEDEMA
     Dosage: 50 MG, 2/D
  5. DICLOFEN [Concomitant]
     Indication: OSTEOARTHRITIS
     Dosage: 100 MG, DAILY (1/D)
     Route: 048

REACTIONS (9)
  - ATRIAL FIBRILLATION [None]
  - EJECTION FRACTION DECREASED [None]
  - FLUID OVERLOAD [None]
  - GLYCOSYLATED HAEMOGLOBIN INCREASED [None]
  - HEART RATE INCREASED [None]
  - HEART VALVE INCOMPETENCE [None]
  - PANCREATITIS ACUTE [None]
  - WEIGHT DECREASED [None]
  - WEIGHT INCREASED [None]
